FAERS Safety Report 25726866 (Version 1)
Quarter: 2025Q3

REPORT INFORMATION
  Report Type: Spontaneous
  Country: CA (occurrence: CA)
  Receive Date: 20250826
  Receipt Date: 20250826
  Transmission Date: 20251021
  Serious: Yes (Other)
  Sender: FRESENIUS KABI
  Company Number: CA-FreseniusKabi-FK202511582

PATIENT
  Age: 63 Year
  Sex: Female

DRUGS (4)
  1. AMIODARONE [Suspect]
     Active Substance: AMIODARONE
     Indication: Product used for unknown indication
  2. ATORVASTATIN [Concomitant]
     Active Substance: ATORVASTATIN
     Indication: Product used for unknown indication
     Route: 065
  3. LEVOTHYROXINE [Concomitant]
     Active Substance: LEVOTHYROXINE
     Indication: Product used for unknown indication
     Route: 065
  4. WARFARIN [Concomitant]
     Active Substance: WARFARIN
     Indication: Product used for unknown indication

REACTIONS (8)
  - Anxiety [Unknown]
  - Chest pain [Unknown]
  - Dyspnoea [Unknown]
  - Fatigue [Unknown]
  - Hyperthyroidism [Unknown]
  - Hypoaesthesia [Unknown]
  - Palpitations [Unknown]
  - Anticoagulation drug level above therapeutic [Unknown]
